FAERS Safety Report 9137289 (Version 1)
Quarter: 2013Q1

REPORT INFORMATION
  Report Type: Spontaneous
  Country: US (occurrence: US)
  Receive Date: 20130219
  Receipt Date: 20130219
  Transmission Date: 20140127
  Serious: No
  Sender: FDA-Public Use
  Company Number: US-BRISTOL-MYERS SQUIBB COMPANY-16495673

PATIENT
  Age: 47 Year
  Sex: Female
  Weight: 90.7 kg

DRUGS (2)
  1. ORENCIA [Suspect]
     Dosage: LAST DOSE ON 08MAR12.
     Route: 042
     Dates: start: 2011
  2. METHYLPREDNISONE [Suspect]

REACTIONS (2)
  - Joint swelling [Not Recovered/Not Resolved]
  - Weight increased [Unknown]
